FAERS Safety Report 18392316 (Version 1)
Quarter: 2020Q4

REPORT INFORMATION
  Report Type: Report from Study
  Country: None (occurrence: US)
  Receive Date: 20201016
  Receipt Date: 20201016
  Transmission Date: 20210114
  Serious: Yes (Other)
  Sender: FDA-Public Use
  Company Number: US-ABBVIE-20K-163-3399352-00

PATIENT
  Age: 55 Year
  Sex: Female

DRUGS (4)
  1. HUMIRA [Suspect]
     Active Substance: ADALIMUMAB
     Route: 058
     Dates: start: 20200902
  2. HUMIRA [Suspect]
     Active Substance: ADALIMUMAB
     Dosage: DAY 15
     Route: 058
     Dates: start: 20200422, end: 20200422
  3. HUMIRA [Suspect]
     Active Substance: ADALIMUMAB
     Indication: COLITIS ULCERATIVE
     Dosage: DAY 1
     Route: 058
     Dates: start: 20200408, end: 20200408
  4. HUMIRA [Suspect]
     Active Substance: ADALIMUMAB
     Route: 058
     Dates: start: 2020, end: 2020

REACTIONS (25)
  - Decreased appetite [Unknown]
  - Injection site bruising [Recovered/Resolved]
  - Arthralgia [Unknown]
  - Skin laceration [Not Recovered/Not Resolved]
  - Abdominal pain [Unknown]
  - Fear [Unknown]
  - Skin laceration [Not Recovered/Not Resolved]
  - Haemorrhoids [Unknown]
  - Frequent bowel movements [Unknown]
  - Pruritus [Unknown]
  - Impaired healing [Unknown]
  - Postoperative wound infection [Unknown]
  - Anxiety [Unknown]
  - Pain [Not Recovered/Not Resolved]
  - Pneumonia [Unknown]
  - Infrequent bowel movements [Unknown]
  - Flushing [Unknown]
  - COVID-19 [Unknown]
  - Pain in extremity [Unknown]
  - Diarrhoea haemorrhagic [Unknown]
  - Rectal haemorrhage [Unknown]
  - Trigger finger [Unknown]
  - Proctitis [Unknown]
  - Depressed mood [Unknown]
  - Abdominal pain upper [Not Recovered/Not Resolved]

NARRATIVE: CASE EVENT DATE: 2020
